FAERS Safety Report 4637135-4 (Version None)
Quarter: 2005Q2

REPORT INFORMATION
  Report Type: 
  Country: None (occurrence: None)
  Receive Date: 20050325
  Receipt Date: 20050107
  Transmission Date: 20051028
  Serious: No
  Sender: FDA-Public Use
  Company Number: USA040875830

PATIENT
  Age: 67 Year
  Sex: Female

DRUGS (3)
  1. FORTEO [Suspect]
     Indication: OSTEOPOROSIS
     Dosage: 20 UG DAY
     Dates: start: 20031201
  2. CALTRATE [Concomitant]
  3. OSCAL (CALCIUM CARBONATE) [Concomitant]

REACTIONS (2)
  - BONE DENSITY DECREASED [None]
  - INJECTION SITE ERYTHEMA [None]
